FAERS Safety Report 9129674 (Version 1)
Quarter: 2013Q1

REPORT INFORMATION
  Report Type: Spontaneous
  Country: US (occurrence: US)
  Receive Date: 20130125
  Receipt Date: 20130125
  Transmission Date: 20140127
  Serious: Yes (Other)
  Sender: FDA-Public Use
  Company Number: CHPA2013US001511

PATIENT
  Sex: Female

DRUGS (1)
  1. TRANSDERM SCOP [Suspect]
     Indication: ANAESTHESIA
     Dosage: 1 DF, UNK
     Route: 062
     Dates: start: 20130114, end: 20130117

REACTIONS (7)
  - Urticaria [Recovering/Resolving]
  - Dizziness [Recovered/Resolved]
  - Heart rate increased [Recovering/Resolving]
  - Palpitations [Recovering/Resolving]
  - Dysuria [Recovering/Resolving]
  - Off label use [Unknown]
  - Dry mouth [Recovering/Resolving]
